FAERS Safety Report 6988597-9 (Version None)
Quarter: 2010Q3

REPORT INFORMATION
  Report Type: 
  Country: None (occurrence: None)
  Receive Date: 20100916
  Receipt Date: 20100908
  Transmission Date: 20110219
  Serious: Yes (Hospitalization)
  Sender: FDA-Public Use
  Company Number: IT-JNJFOC-20100903279

PATIENT
  Sex: Male

DRUGS (1)
  1. IMODIUM [Suspect]
     Indication: DIARRHOEA
     Dosage: 2MG/PILL, 3 UNITS IN A DAY
     Route: 048

REACTIONS (2)
  - ABDOMINAL PAIN [None]
  - GASTROINTESTINAL HYPOMOTILITY [None]
